FAERS Safety Report 11343900 (Version 1)
Quarter: 2015Q3

REPORT INFORMATION
  Report Type: Spontaneous
  Country: BR (occurrence: BR)
  Receive Date: 20150806
  Receipt Date: 20150806
  Transmission Date: 20151125
  Serious: Yes (Other)
  Sender: FDA-Public Use
  Company Number: PHHY2015BR094393

PATIENT
  Sex: Male
  Weight: 75 kg

DRUGS (1)
  1. RITALINE [Suspect]
     Active Substance: METHYLPHENIDATE HYDROCHLORIDE
     Indication: ANXIETY
     Dosage: 2 DF, QD
     Route: 048

REACTIONS (3)
  - Learning disorder [Not Recovered/Not Resolved]
  - Accident [Not Recovered/Not Resolved]
  - Off label use [Unknown]
